FAERS Safety Report 8204676-2 (Version None)
Quarter: 2012Q1

REPORT INFORMATION
  Report Type: 
  Country: None (occurrence: None)
  Receive Date: 20120313
  Receipt Date: 20120312
  Transmission Date: 20120608
  Serious: Yes (Other)
  Sender: FDA-Public Use
  Company Number: US-PFIZER INC-2012065209

PATIENT
  Sex: Male
  Weight: 90.7 kg

DRUGS (2)
  1. LIPITOR [Suspect]
     Dosage: UNK
     Dates: end: 20100101
  2. LIPITOR [Suspect]
     Indication: BLOOD CHOLESTEROL INCREASED
     Dosage: 20 MG, DAILY
     Dates: start: 20040101

REACTIONS (1)
  - LUNG NEOPLASM MALIGNANT [None]
